FAERS Safety Report 6768415-4 (Version None)
Quarter: 2010Q2

REPORT INFORMATION
  Report Type: 
  Country: None (occurrence: None)
  Receive Date: 20100614
  Receipt Date: 20100602
  Transmission Date: 20101027
  Serious: Yes (Other)
  Sender: FDA-Public Use
  Company Number: JP-PFIZER INC-2010069583

PATIENT
  Age: 13 Year
  Sex: Male
  Weight: 66 kg

DRUGS (5)
  1. METHYLPREDNISOLONE SODIUM SUCCINATE [Suspect]
     Indication: FOCAL SEGMENTAL GLOMERULOSCLEROSIS
     Dosage: 1 G PER DAY
     Route: 041
  2. PREDNISOLONE [Concomitant]
     Dosage: 80 MG PER DAY
  3. CICLOSPORIN [Concomitant]
     Dosage: 200 MG PER DAY
     Route: 048
  4. MIZORIBINE [Concomitant]
     Dosage: 200 MG PER DAY
     Route: 048
  5. LISINOPRIL [Concomitant]
     Dosage: 10 MG PER DAY
     Route: 048

REACTIONS (3)
  - ALANINE AMINOTRANSFERASE INCREASED [None]
  - ASPARTATE AMINOTRANSFERASE INCREASED [None]
  - LIVER DISORDER [None]
